FAERS Safety Report 13828088 (Version 1)
Quarter: 2017Q3

REPORT INFORMATION
  Report Type: Spontaneous
  Country: FR (occurrence: FR)
  Receive Date: 20170803
  Receipt Date: 20170803
  Transmission Date: 20171127
  Serious: Yes (Other)
  Sender: FDA-Public Use
  Company Number: FR-ROCHE-1968212

PATIENT
  Age: 51 Year
  Sex: Female

DRUGS (14)
  1. DEPAKINE [Suspect]
     Active Substance: VALPROATE SODIUM
     Indication: EPILEPSY
     Route: 048
     Dates: start: 20150219
  2. DUROGESIC [Suspect]
     Active Substance: FENTANYL
     Indication: PAIN
     Dosage: TRANSDERMAL DEVICE
     Route: 065
     Dates: start: 2009
  3. TIVICAY [Concomitant]
     Active Substance: DOLUTEGRAVIR SODIUM
  4. RIVOTRIL [Suspect]
     Active Substance: CLONAZEPAM
     Indication: EPILEPSY
     Dosage: QUARTER-SCORED TABLET
     Route: 048
     Dates: start: 2008
  5. COMBIVIR [Suspect]
     Active Substance: LAMIVUDINE\ZIDOVUDINE
     Indication: HIV TEST POSITIVE
     Dosage: 150 MG/300 MG
     Route: 048
     Dates: start: 2007, end: 20150220
  6. LOVENOX [Suspect]
     Active Substance: ENOXAPARIN SODIUM
     Indication: VENOUS THROMBOSIS
     Route: 058
     Dates: start: 20150213, end: 20150216
  7. EDURANT [Concomitant]
     Active Substance: RILPIVIRINE HYDROCHLORIDE
  8. KIVEXA [Concomitant]
     Active Substance: ABACAVIR SULFATE\LAMIVUDINE
  9. ZELITREX [Suspect]
     Active Substance: VALACYCLOVIR HYDROCHLORIDE
     Indication: PROPHYLAXIS
     Dosage: COATED TABLET
     Route: 048
     Dates: start: 2009
  10. CLAMOXYL (FRANCE) [Suspect]
     Active Substance: AMOXICILLIN\CLAVULANIC ACID
     Indication: LUNG DISORDER
     Dosage: DISPERSIBLE TABLET
     Route: 048
     Dates: start: 20150215, end: 20150222
  11. FUNGIZONE [Suspect]
     Active Substance: AMPHOTERICIN B
     Indication: ORAL CANDIDIASIS
     Route: 048
     Dates: start: 20150213, end: 20150226
  12. DEPAKINE CHRONO [Concomitant]
     Active Substance: VALPROATE SODIUM
  13. KEPPRA [Suspect]
     Active Substance: LEVETIRACETAM
     Indication: EPILEPSY
     Route: 048
     Dates: start: 2008, end: 20150222
  14. CALCIPARINE [Concomitant]
     Active Substance: HEPARIN CALCIUM

REACTIONS (3)
  - Visual acuity reduced [Not Recovered/Not Resolved]
  - Neuropathy peripheral [Recovered/Resolved]
  - Hemianopia homonymous [Not Recovered/Not Resolved]

NARRATIVE: CASE EVENT DATE: 20150226
